FAERS Safety Report 24747679 (Version 1)
Quarter: 2024Q4

REPORT INFORMATION
  Report Type: Spontaneous
  Country: IN (occurrence: IN)
  Receive Date: 20241218
  Receipt Date: 20241218
  Transmission Date: 20250115
  Serious: Yes (Death)
  Sender: PFIZER
  Company Number: IN-PFIZER INC-PV202200005603

PATIENT
  Age: 67 Year
  Sex: Male

DRUGS (13)
  1. DACOMITINIB [Suspect]
     Active Substance: DACOMITINIB
     Dosage: 30 MG, 1X/DAY
     Route: 048
     Dates: start: 20210728
  2. DACOMITINIB [Suspect]
     Active Substance: DACOMITINIB
     Dosage: 45 MG, 1X/DAY
     Route: 048
  3. OMEZ DSR [Concomitant]
     Dosage: UNK, 1X/DAY
  4. TABI [Concomitant]
     Dosage: 50 MG, 1X/DAY
  5. SILOFAST [Concomitant]
     Dosage: UNK
  6. OTRIVIN [Concomitant]
     Active Substance: XYLOMETAZOLINE
     Dosage: 2 MONTHS
  7. REGEST [Concomitant]
     Dosage: 160 MG, 2X/DAY
  8. REGEST [Concomitant]
     Dosage: 100 MG, 1X/DAY
  9. REGEST [Concomitant]
     Dosage: 160 MG, 1X/DAY
  10. REGEST [Concomitant]
     Dosage: 60 MG, 2X/DAY
  11. REGEST [Concomitant]
     Dosage: 160 MG, 2X/DAY
  12. DEXAMETHASONE [Concomitant]
     Active Substance: DEXAMETHASONE
     Dosage: 0.5 MG, 1X/DAY
  13. ZEDOX [Concomitant]
     Dosage: UNK

REACTIONS (3)
  - Death [Fatal]
  - Neoplasm progression [Unknown]
  - Product prescribing issue [Unknown]

NARRATIVE: CASE EVENT DATE: 20241130
